FAERS Safety Report 22144713 (Version 2)
Quarter: 2023Q2

REPORT INFORMATION
  Report Type: Report from Study
  Country: BR (occurrence: BR)
  Receive Date: 20230328
  Receipt Date: 20230410
  Transmission Date: 20230722
  Serious: Yes (Disabling)
  Sender: FDA-Public Use
  Company Number: BR-CELLTRION INC.-2023BR006402

PATIENT

DRUGS (3)
  1. INFLIXIMAB [Suspect]
     Active Substance: INFLIXIMAB
     Indication: Crohn^s disease
     Dosage: 4 AMPOULES EVERY 30 DAYS
     Route: 042
     Dates: start: 20230130
  2. INFLIXIMAB [Suspect]
     Active Substance: INFLIXIMAB
     Dosage: EVERY 8 WEEKS
     Route: 042
  3. CARVEDILOL [Concomitant]
     Active Substance: CARVEDILOL
     Indication: Liver disorder
     Dosage: 2 CAPSULE PER DAY
     Route: 048
     Dates: start: 2022

REACTIONS (5)
  - Arthralgia [Unknown]
  - Peripheral swelling [Unknown]
  - Therapeutic response changed [Not Recovered/Not Resolved]
  - Therapeutic product effect decreased [Not Recovered/Not Resolved]
  - Off label use [Unknown]
